FAERS Safety Report 16824208 (Version 1)
Quarter: 2019Q3

REPORT INFORMATION
  Report Type: Spontaneous
  Country: BR (occurrence: BR)
  Receive Date: 20190918
  Receipt Date: 20190918
  Transmission Date: 20191005
  Serious: Yes (Hospitalization, Other)
  Sender: FDA-Public Use
  Company Number: PHHY2019BR215636

PATIENT
  Sex: Male

DRUGS (1)
  1. DUOTRAV BAC-FREE [Suspect]
     Active Substance: TIMOLOL\TRAVOPROST
     Indication: PROPHYLAXIS
     Route: 065

REACTIONS (3)
  - Cough [Unknown]
  - Drug dependence [Unknown]
  - Pneumonia [Unknown]
